FAERS Safety Report 6887103-7 (Version None)
Quarter: 2010Q3

REPORT INFORMATION
  Report Type: 
  Country: None (occurrence: None)
  Receive Date: 20100730
  Receipt Date: 20100723
  Transmission Date: 20110219
  Serious: Yes (Hospitalization)
  Sender: FDA-Public Use
  Company Number: US-SANOFI-AVENTIS-2010SA034426

PATIENT
  Age: 79 Year
  Sex: Male
  Weight: 94.33 kg

DRUGS (6)
  1. PLAVIX [Suspect]
     Route: 048
     Dates: start: 20090201, end: 20100530
  2. ASPIRIN [Suspect]
     Route: 065
     Dates: end: 20100525
  3. ASPIRIN [Suspect]
     Route: 065
     Dates: start: 20100601
  4. ANTIHYPERTENSIVES [Concomitant]
  5. SIMVASTATIN [Concomitant]
  6. VITAMINS [Concomitant]

REACTIONS (10)
  - ASTHENIA [None]
  - BLOOD PRESSURE INCREASED [None]
  - CARDIAC FAILURE [None]
  - CARDIAC FAILURE CONGESTIVE [None]
  - DYSPNOEA [None]
  - FLUID RETENTION [None]
  - HAEMATURIA [None]
  - LOSS OF CONSCIOUSNESS [None]
  - OEDEMA PERIPHERAL [None]
  - RENAL HAEMORRHAGE [None]
